FAERS Safety Report 4675764-2 (Version None)
Quarter: 2005Q2

REPORT INFORMATION
  Report Type: 
  Country: None (occurrence: None)
  Receive Date: 20050527
  Receipt Date: 20050406
  Transmission Date: 20051028
  Serious: No
  Sender: FDA-Public Use
  Company Number: US-BRISTOL-MYERS SQUIBB COMPANY-12923306

PATIENT
  Sex: Male

DRUGS (3)
  1. ERBITUX [Suspect]
     Route: 042
     Dates: start: 20050406, end: 20050406
  2. BENADRYL [Concomitant]
     Indication: PREMEDICATION
     Dates: start: 20050406, end: 20050406
  3. TYLENOL (CAPLET) [Concomitant]
     Indication: PREMEDICATION
     Dates: start: 20050406, end: 20050406

REACTIONS (1)
  - EXTRAVASATION [None]
